FAERS Safety Report 7964171-2 (Version None)
Quarter: 2011Q4

REPORT INFORMATION
  Report Type: 
  Country: None (occurrence: None)
  Receive Date: 20111208
  Receipt Date: 20111201
  Transmission Date: 20120403
  Serious: Yes (Other)
  Sender: FDA-Public Use
  Company Number: CL-BRISTOL-MYERS SQUIBB COMPANY-16238628

PATIENT
  Age: 44 Year
  Sex: Female

DRUGS (2)
  1. GLAFORNIL [Concomitant]
     Indication: DIABETES MELLITUS
  2. ORENCIA [Suspect]
     Indication: RHEUMATOID ARTHRITIS
     Dosage: INTERRUPTED FOR 1 YEAR
     Dates: start: 20090501

REACTIONS (2)
  - PORTAL HYPERTENSION [None]
  - GASTROINTESTINAL VASCULAR MALFORMATION [None]
